FAERS Safety Report 9732045 (Version 1)
Quarter: 2013Q4

REPORT INFORMATION
  Report Type: Spontaneous
  Country: US (occurrence: None)
  Receive Date: 20131204
  Receipt Date: 20131204
  Transmission Date: 20140711
  Serious: Yes (Death)
  Sender: FDA-Public Use
  Company Number: None

PATIENT
  Age: 65 Year
  Sex: Female
  Weight: 65 kg

DRUGS (2)
  1. WARFARIN [Suspect]
     Indication: CEREBROVASCULAR ACCIDENT
     Dosage: 1 PILL VARIES ORAL
  2. WARFARIN [Suspect]
     Dosage: 1 PILL VARIES ORAL

REACTIONS (9)
  - Gastrointestinal haemorrhage [None]
  - Nausea [None]
  - Vomiting [None]
  - Diarrhoea [None]
  - Haematemesis [None]
  - Respiratory failure [None]
  - Ischaemia [None]
  - Embolism arterial [None]
  - International normalised ratio increased [None]
